FAERS Safety Report 7939115-X (Version None)
Quarter: 2011Q4

REPORT INFORMATION
  Report Type: 
  Country: None (occurrence: None)
  Receive Date: 20111124
  Receipt Date: 20111117
  Transmission Date: 20120403
  Serious: Yes (Other)
  Sender: FDA-Public Use
  Company Number: ZA-ROCHE-1012806

PATIENT
  Sex: Female
  Weight: 55 kg

DRUGS (3)
  1. TYKERB [Concomitant]
     Indication: BREAST CANCER
     Route: 048
     Dates: start: 20111011
  2. LIPITOR [Concomitant]
     Indication: BLOOD CHOLESTEROL
     Route: 048
     Dates: start: 20080101, end: 20111103
  3. XELODA [Suspect]
     Indication: BREAST CANCER
     Route: 048
     Dates: start: 20111011

REACTIONS (1)
  - HAEMOLYSIS [None]
